FAERS Safety Report 4384697-0 (Version None)
Quarter: 2004Q2

REPORT INFORMATION
  Report Type: 
  Country: None (occurrence: None)
  Receive Date: 20040625
  Receipt Date: 20040616
  Transmission Date: 20050107
  Serious: Yes (Hospitalization, Other)
  Sender: FDA-Public Use
  Company Number: PHRM2004FR02147

PATIENT
  Age: 52 Year
  Sex: Male
  Weight: 66 kg

DRUGS (9)
  1. CLOZAPINE [Suspect]
     Indication: SCHIZOPHRENIA, PARANOID TYPE
     Route: 048
     Dates: start: 20030801, end: 20040201
  2. CLOZAPINE [Suspect]
     Dosage: 350 MG, DAILY
     Route: 048
     Dates: start: 20040201, end: 20040305
  3. CLOZAPINE [Suspect]
     Dosage: 6 DF, DAILY
     Route: 048
     Dates: start: 20040305, end: 20040305
  4. CLOZAPINE [Suspect]
     Dosage: 350 MG, DAILY
     Route: 048
     Dates: start: 20040307, end: 20040312
  5. CLOZAPINE [Suspect]
     Route: 048
     Dates: start: 20040322
  6. LOXAPAC [Concomitant]
     Indication: SCHIZOPHRENIA, PARANOID TYPE
     Dosage: 150 MG, DAILY
     Route: 065
     Dates: start: 20040312, end: 20040316
  7. XANAX [Concomitant]
     Indication: SCHIZOPHRENIA, PARANOID TYPE
     Route: 065
     Dates: start: 20040316, end: 20040317
  8. RISPERDAL [Concomitant]
     Indication: SCHIZOPHRENIA, PARANOID TYPE
     Route: 065
     Dates: start: 20040316, end: 20040317
  9. MOPRAL [Concomitant]
     Route: 065
     Dates: start: 20040309

REACTIONS (4)
  - BLOOD CREATINE PHOSPHOKINASE INCREASED [None]
  - LEUKOCYTOSIS [None]
  - MEDICATION ERROR [None]
  - THERAPEUTIC RESPONSE DECREASED [None]
